FAERS Safety Report 8338753-2 (Version None)
Quarter: 2012Q2

REPORT INFORMATION
  Report Type: 
  Country: None (occurrence: None)
  Receive Date: 20120504
  Receipt Date: 20120327
  Transmission Date: 20120825
  Serious: Yes (Hospitalization)
  Sender: FDA-Public Use
  Company Number: GB-BAXTER-2012BAX002071

PATIENT
  Age: 75 Year
  Sex: Female

DRUGS (3)
  1. NUTRINEAL [Suspect]
     Route: 033
     Dates: start: 20070521
  2. EXTRANEAL [Suspect]
     Route: 033
     Dates: start: 20070521
  3. DIANEAL [Suspect]
     Route: 033
     Dates: start: 20070521

REACTIONS (1)
  - METRORRHAGIA [None]
